FAERS Safety Report 6323314-7 (Version None)
Quarter: 2009Q3

REPORT INFORMATION
  Report Type: 
  Country: None (occurrence: None)
  Receive Date: 20090824
  Receipt Date: 20090413
  Transmission Date: 20100115
  Serious: No
  Sender: FDA-Public Use
  Company Number: US-ABBOTT-09P-163-0568017-00

PATIENT
  Sex: Female
  Weight: 67.646 kg

DRUGS (4)
  1. NIASPAN [Suspect]
     Indication: BLOOD CHOLESTEROL INCREASED
     Route: 048
     Dates: start: 20080101, end: 20080101
  2. NIASPAN [Suspect]
     Route: 048
     Dates: start: 20080101, end: 20080101
  3. NIASPAN [Suspect]
     Route: 048
     Dates: start: 20090401
  4. NEXIUM [Concomitant]
     Indication: DRUG USE FOR UNKNOWN INDICATION

REACTIONS (2)
  - ABDOMINAL PAIN UPPER [None]
  - DIARRHOEA [None]
